FAERS Safety Report 9874714 (Version 1)
Quarter: 2014Q1

REPORT INFORMATION
  Report Type: Other
  Country: US (occurrence: US)
  Receive Date: 20140206
  Receipt Date: 20140206
  Transmission Date: 20141002
  Serious: Yes (Hospitalization)
  Sender: FDA-Public Use
  Company Number: US-ACORDA-ACO_36234_2013

PATIENT
  Sex: Female
  Weight: 68.27 kg

DRUGS (10)
  1. AMPYRA [Suspect]
     Indication: GAIT DISTURBANCE
     Dosage: 10 MG, QD
     Route: 048
     Dates: start: 201304, end: 2013
  2. AMPYRA [Suspect]
     Dosage: 10 MG QD
     Dates: start: 2013
  3. NORCO [Suspect]
     Indication: MIGRAINE
     Dosage: 5/325
     Route: 048
     Dates: start: 2012
  4. PERCOCET [Suspect]
     Indication: MIGRAINE
     Dosage: ^LOWER DOSE^
     Route: 048
     Dates: start: 201212
  5. METFORMIN [Concomitant]
     Indication: PRODUCT USED FOR UNKNOWN INDICATION
     Dosage: 500 MG, UNK
  6. TRICOR [Concomitant]
     Indication: PRODUCT USED FOR UNKNOWN INDICATION
     Dosage: 145 MG, UNK
  7. SIMVASTATIN [Concomitant]
     Indication: PRODUCT USED FOR UNKNOWN INDICATION
     Dosage: 20 MG, UNK
  8. ESTER C [Concomitant]
     Indication: PRODUCT USED FOR UNKNOWN INDICATION
     Dosage: 1000 MG, UNK
  9. VITAMIN B COMPLEX [Concomitant]
     Indication: PRODUCT USED FOR UNKNOWN INDICATION
     Dosage: UNK
  10. ALL OTHER THERAPEUTIC PRODUCTS [Concomitant]
     Indication: MULTIPLE ALLERGIES
     Dosage: UNK

REACTIONS (4)
  - Multiple sclerosis relapse [Recovered/Resolved]
  - Laryngitis viral [Not Recovered/Not Resolved]
  - Migraine [Recovered/Resolved]
  - Constipation [Recovered/Resolved]
